FAERS Safety Report 22248224 (Version 2)
Quarter: 2023Q2

REPORT INFORMATION
  Report Type: Spontaneous
  Country: US (occurrence: US)
  Receive Date: 20230425
  Receipt Date: 20230426
  Transmission Date: 20230722
  Serious: No
  Sender: FDA-Public Use
  Company Number: US-JNJFOC-20230428419

PATIENT
  Age: 78 Year
  Sex: Male

DRUGS (6)
  1. RISPERDAL [Suspect]
     Active Substance: RISPERIDONE
     Indication: Schizophrenia
     Dosage: EVERY NIGHT
     Route: 065
     Dates: start: 2007
  2. PROMETHAZINE [Concomitant]
     Active Substance: PROMETHAZINE HYDROCHLORIDE
  3. TRAMADOL [Concomitant]
     Active Substance: TRAMADOL
  4. FOLIC ACID [Concomitant]
     Active Substance: FOLIC ACID
  5. ELASOMERAN [Concomitant]
     Active Substance: ELASOMERAN
  6. SINEMET [Concomitant]
     Active Substance: CARBIDOPA\LEVODOPA
     Dates: start: 2019

REACTIONS (1)
  - Parkinsonism [Unknown]
